FAERS Safety Report 10663482 (Version 1)
Quarter: 2014Q4

REPORT INFORMATION
  Report Type: Spontaneous
  Country: ES (occurrence: ES)
  Receive Date: 20141219
  Receipt Date: 20141219
  Transmission Date: 20150529
  Serious: Yes (Other)
  Sender: FDA-Public Use
  Company Number: ES-CIPLA LTD.-2014ES02538

PATIENT

DRUGS (2)
  1. GEMCITABINE [Suspect]
     Active Substance: GEMCITABINE\GEMCITABINE HYDROCHLORIDE
     Indication: COLORECTAL CANCER METASTATIC
     Dosage: 1000 MG/M2, FOR 30 MIN ON DAY 1, REPEATED EVERY 2 WEEKS
     Route: 042
  2. CAPECITABINE. [Suspect]
     Active Substance: CAPECITABINE
     Indication: COLORECTAL CANCER METASTATIC
     Dosage: 1000 MG/M2/ 12 H, ON DAYS 1-7, REPEATED EVERY 2 WEEKS
     Route: 048

REACTIONS (1)
  - Palmar-plantar erythrodysaesthesia syndrome [Unknown]
